FAERS Safety Report 9645910 (Version 1)
Quarter: 2013Q4

REPORT INFORMATION
  Report Type: Spontaneous
  Country: DE (occurrence: DE)
  Receive Date: 20131025
  Receipt Date: 20131025
  Transmission Date: 20140711
  Serious: Yes (Disabling, Congenital Anomaly)
  Sender: FDA-Public Use
  Company Number: DE-TEVA-439058GER

PATIENT
  Age: 1 Day
  Sex: Female
  Weight: 1.95 kg

DRUGS (9)
  1. PREDNISOLONE [Suspect]
     Route: 064
  2. FUROSEMIDE [Suspect]
     Route: 064
  3. TORASEMIDE [Suspect]
     Route: 064
  4. FLUVASTATIN [Suspect]
     Route: 064
  5. RAMIPRIL [Suspect]
     Route: 064
  6. PROGRAF [Suspect]
     Route: 064
  7. OMEPRAZOL [Concomitant]
     Route: 064
  8. IDEOS [Concomitant]
     Route: 064
  9. FOLSAEURE [Concomitant]
     Route: 064

REACTIONS (8)
  - Autosomal chromosome anomaly [Unknown]
  - Talipes [Unknown]
  - Cleft palate [Unknown]
  - Patent ductus arteriosus [Unknown]
  - Dysmorphism [Unknown]
  - Atrial septal defect [Unknown]
  - Premature baby [Recovering/Resolving]
  - Limb reduction defect [Not Recovered/Not Resolved]
